FAERS Safety Report 4890924-3 (Version None)
Quarter: 2006Q1

REPORT INFORMATION
  Report Type: 
  Country: None (occurrence: None)
  Receive Date: 20060125
  Receipt Date: 20060117
  Transmission Date: 20060701
  Serious: Yes (Other)
  Sender: FDA-Public Use
  Company Number: NL-JNJFOC-20051101120

PATIENT
  Sex: Female
  Weight: 60 kg

DRUGS (2)
  1. RISPERDAL CONSTA [Suspect]
     Route: 030
  2. SEROXAL [Concomitant]
     Route: 048

REACTIONS (3)
  - DYSPNOEA [None]
  - HEADACHE [None]
  - SWELLING FACE [None]
